FAERS Safety Report 8188625-1 (Version None)
Quarter: 2012Q1

REPORT INFORMATION
  Report Type: 
  Country: None (occurrence: None)
  Receive Date: 20120306
  Receipt Date: 20120305
  Transmission Date: 20120608
  Serious: No
  Sender: FDA-Public Use
  Company Number: US-PFIZER INC-2012029524

PATIENT
  Sex: Male
  Weight: 109 kg

DRUGS (7)
  1. TRAZODONE [Concomitant]
     Dosage: UNK
  2. NEURONTIN [Concomitant]
     Dosage: UNK
  3. CHANTIX [Suspect]
     Dosage: 0.5 MG, 1X/DAY
     Route: 048
     Dates: start: 20120101, end: 20120101
  4. CHANTIX [Suspect]
     Dosage: UNK
     Route: 048
     Dates: start: 20120101
  5. SEROQUEL [Concomitant]
     Dosage: UNK
  6. CHANTIX [Suspect]
     Indication: SMOKING CESSATION THERAPY
     Dosage: 0.5 MG, 1X/DAY
     Route: 048
     Dates: start: 20111101, end: 20120123
  7. MORPHINE SULFATE [Concomitant]
     Dosage: UNK

REACTIONS (2)
  - DIARRHOEA [None]
  - NASOPHARYNGITIS [None]
